FAERS Safety Report 18020315 (Version 3)
Quarter: 2021Q3

REPORT INFORMATION
  Report Type: Other
  Country: CO (occurrence: CO)
  Receive Date: 20200714
  Receipt Date: 20210930
  Transmission Date: 20211014
  Serious: Yes (Hospitalization, Other)
  Sender: FDA-Public Use
  Company Number: CO-ROCHE-2640584

PATIENT
  Age: 34 Year
  Sex: Female

DRUGS (4)
  1. XOLAIR [Suspect]
     Active Substance: OMALIZUMAB
     Indication: ASTHMA
     Route: 058
     Dates: start: 20190427
  2. XOLAIR [Suspect]
     Active Substance: OMALIZUMAB
     Route: 058
     Dates: start: 20200618, end: 202006
  3. PREDNISOLONE. [Concomitant]
     Active Substance: PREDNISOLONE
     Indication: ASTHMA
     Dosage: 50 MG, Q24H
     Route: 048
  4. OXYGEN. [Concomitant]
     Active Substance: OXYGEN
     Indication: ASTHMA
     Dosage: UNK, QD (AT NIGHT)
     Route: 065

REACTIONS (17)
  - Chest pain [Recovering/Resolving]
  - Pleural effusion [Recovered/Resolved]
  - Diabetes mellitus [Unknown]
  - Pyrexia [Recovered/Resolved]
  - Cushing^s syndrome [Unknown]
  - Asthma [Unknown]
  - Tachycardia [Unknown]
  - Chills [Recovering/Resolving]
  - Malaise [Recovered/Resolved]
  - Weight increased [Not Recovered/Not Resolved]
  - Osteoarthritis [Unknown]
  - Bone pain [Recovered/Resolved]
  - Dizziness [Unknown]
  - Headache [Unknown]
  - Pain [Recovering/Resolving]
  - Dyspnoea [Recovering/Resolving]
  - Fatigue [Unknown]

NARRATIVE: CASE EVENT DATE: 2020
